FAERS Safety Report 14658353 (Version 1)
Quarter: 2018Q1

REPORT INFORMATION
  Report Type: Spontaneous
  Country: US (occurrence: US)
  Receive Date: 20180320
  Receipt Date: 20180320
  Transmission Date: 20180509
  Serious: No
  Sender: FDA-Public Use
  Company Number: US-009507513-1803USA005214

PATIENT
  Age: 67 Year
  Sex: Female

DRUGS (5)
  1. PROVENTIL [Suspect]
     Active Substance: ALBUTEROL
     Indication: WHEEZING
     Dosage: 2 DF(2 PUFFS) EVERY 4 HOURS
     Route: 048
     Dates: start: 20180307, end: 20180310
  2. ZOCOR [Concomitant]
     Active Substance: SIMVASTATIN
     Indication: BLOOD CHOLESTEROL
     Dosage: UNK, HS (BED TIME)
     Route: 048
  3. ASPIRIN. [Concomitant]
     Active Substance: ASPIRIN
     Indication: CARDIAC DISORDER
     Dosage: 1 DF, QAM
     Route: 048
  4. METFORMIN [Concomitant]
     Active Substance: METFORMIN HYDROCHLORIDE
     Indication: DIABETES MELLITUS
     Dosage: 500 MG, BID
  5. AMLODIPINE [Concomitant]
     Active Substance: AMLODIPINE BESYLATE
     Indication: HYPERTENSION
     Dosage: UNK, QAM

REACTIONS (6)
  - Dyspnoea [Not Recovered/Not Resolved]
  - Inappropriate schedule of drug administration [Unknown]
  - Product use issue [Unknown]
  - Drug ineffective [Unknown]
  - Product quality issue [Unknown]
  - Insomnia [Unknown]

NARRATIVE: CASE EVENT DATE: 201803
